FAERS Safety Report 5298385-X (Version None)
Quarter: 2007Q2

REPORT INFORMATION
  Report Type: 
  Country: None (occurrence: None)
  Receive Date: 20070416
  Receipt Date: 20070404
  Transmission Date: 20071010
  Serious: Yes (Hospitalization)
  Sender: FDA-Public Use
  Company Number: FR-PFIZER INC-2007027730

PATIENT
  Age: 69 Year
  Sex: Male

DRUGS (6)
  1. TRIFLUCAN [Suspect]
     Indication: URINARY TRACT INFECTION
     Route: 048
     Dates: start: 20070221, end: 20070221
  2. GLIBENCLAMIDE [Concomitant]
  3. LAMIVUDINE [Concomitant]
  4. FUROSEMIDE [Concomitant]
  5. SPIRONOLACTONE [Concomitant]
  6. LACTULOSE [Concomitant]

REACTIONS (1)
  - ENCEPHALOPATHY [None]
